FAERS Safety Report 4291278-6 (Version None)
Quarter: 2004Q1

REPORT INFORMATION
  Report Type: 
  Country: None (occurrence: None)
  Receive Date: 20040211
  Receipt Date: 20031201
  Transmission Date: 20041129
  Serious: No
  Sender: FDA-Public Use
  Company Number: US-GLAXOSMITHKLINE-A0441487A

PATIENT
  Age: 43 Year
  Sex: Female

DRUGS (4)
  1. PAXIL [Suspect]
     Indication: ANXIETY
     Dosage: 20MG PER DAY
     Route: 048
     Dates: start: 20020101
  2. VIOXX [Concomitant]
  3. SPIRONOLACTONE [Concomitant]
  4. ATIVAN [Concomitant]

REACTIONS (8)
  - ALCOHOL USE [None]
  - ANXIETY [None]
  - APATHY [None]
  - INSOMNIA [None]
  - LIBIDO DECREASED [None]
  - MUSCLE SPASMS [None]
  - NICOTINE DEPENDENCE [None]
  - TREMOR [None]
